FAERS Safety Report 20547788 (Version 1)
Quarter: 2022Q1

REPORT INFORMATION
  Report Type: Spontaneous
  Country: US (occurrence: None)
  Receive Date: 20220303
  Receipt Date: 20220303
  Transmission Date: 20220424
  Serious: No
  Sender: FDA-Public Use
  Company Number: None

PATIENT
  Sex: Female

DRUGS (1)
  1. MATRIX BIOLAGE SCALPSYNC ANTIDANDRUFF [Suspect]
     Active Substance: PYRITHIONE ZINC
     Indication: Dandruff
     Dosage: OTHER FREQUENCY : 1-2 TIMES A WEEK;?
     Route: 061

REACTIONS (3)
  - Suspected product quality issue [None]
  - Alopecia [None]
  - Alopecia [None]

NARRATIVE: CASE EVENT DATE: 20211216
